FAERS Safety Report 8785402 (Version 4)
Quarter: 2013Q3

REPORT INFORMATION
  Report Type: Report from Study
  Country: JP (occurrence: JP)
  Receive Date: 20120914
  Receipt Date: 20130903
  Transmission Date: 20140515
  Serious: Yes (Other)
  Sender: FDA-Public Use
  Company Number: JP-VERTEX PHARMACEUTICAL INC.-AE-2012-006317

PATIENT
  Age: 71 Year
  Sex: Male

DRUGS (15)
  1. VX-950 (TELAPREVIR) [Suspect]
     Indication: CHRONIC HEPATITIS C
     Dosage: 2250 MG, QD
     Route: 048
     Dates: start: 20120301, end: 20120329
  2. VX-950 (TELAPREVIR) [Suspect]
     Dosage: 1500 MG, QD
     Route: 048
     Dates: start: 20120330, end: 20120518
  3. RIBAVIRIN [Suspect]
     Indication: CHRONIC HEPATITIS C
     Dosage: 400 MG, QD
     Route: 048
     Dates: start: 20120301, end: 20120315
  4. RIBAVIRIN [Suspect]
     Dosage: 200 MG, QD
     Route: 048
     Dates: start: 20120316, end: 20120329
  5. RIBAVIRIN [Suspect]
     Dosage: 200 MG, QD
     Route: 048
     Dates: start: 20120713, end: 20120805
  6. PEGINTERFERON ALFA-2B [Suspect]
     Indication: CHRONIC HEPATITIS C
     Dosage: 1.5 ?G/KG, QW
     Route: 058
     Dates: start: 20120302, end: 20120329
  7. PEGINTERFERON ALFA-2B [Suspect]
     Dosage: 1.2 ?G/KG, QW
     Route: 058
     Dates: start: 20120330, end: 20120719
  8. PEGINTERFERON ALFA-2B [Suspect]
     Dosage: 1.5 ?G/KG, QW
     Route: 058
     Dates: start: 20120720, end: 20120810
  9. URSO [Concomitant]
     Dosage: 600 MG, QD
     Route: 048
     Dates: end: 20120810
  10. GLYCYRON [Concomitant]
     Dosage: 105 MG, QD
     Route: 048
     Dates: end: 20120810
  11. BEZATOL [Concomitant]
     Dosage: 400 MG, QD
     Route: 048
  12. FLIVAS [Concomitant]
     Dosage: 25 MG, QD
     Route: 048
  13. REZALTAS [Concomitant]
     Dosage: 10MG/8 MG, QD
     Route: 048
  14. THYRADIN [Concomitant]
     Dosage: 50 ?G, QD
     Route: 048
  15. BUP-4 [Concomitant]
     Dosage: 20 MG, QD
     Route: 048

REACTIONS (2)
  - Renal impairment [Recovered/Resolved]
  - Haemoglobin decreased [Recovered/Resolved]
